FAERS Safety Report 7664969-4 (Version None)
Quarter: 2011Q3

REPORT INFORMATION
  Report Type: 
  Country: None (occurrence: None)
  Receive Date: 20110806
  Receipt Date: 20110204
  Transmission Date: 20111222
  Serious: No
  Sender: FDA-Public Use
  Company Number: US-ABBOTT-11P-163-0703917-00

PATIENT
  Sex: Male
  Weight: 88.53 kg

DRUGS (5)
  1. LOPID [Concomitant]
     Indication: BLOOD TRIGLYCERIDES INCREASED
  2. SYNTHROID [Concomitant]
     Indication: HYPOTHYROIDISM
  3. NIASPAN [Suspect]
     Indication: HIGH DENSITY LIPOPROTEIN DECREASED
     Dosage: EVERY NIGHT AT BEDTIME
  4. IBUPROFEN [Concomitant]
     Indication: PREMEDICATION
  5. PRILOSEC [Concomitant]
     Indication: GASTROOESOPHAGEAL REFLUX DISEASE

REACTIONS (1)
  - FLUSHING [None]
